FAERS Safety Report 5787402-6 (Version None)
Quarter: 2008Q2

REPORT INFORMATION
  Report Type: 
  Country: None (occurrence: None)
  Receive Date: 20080625
  Receipt Date: 20080613
  Transmission Date: 20081010
  Serious: Yes (Hospitalization)
  Sender: FDA-Public Use
  Company Number: JP-ASTRAZENECA-2008SE03090

PATIENT

DRUGS (6)
  1. BLOPRESS [Suspect]
     Indication: HYPERTENSION
     Route: 048
     Dates: start: 20080201, end: 20080511
  2. BLOPRESS [Suspect]
     Route: 048
     Dates: start: 20080610
  3. EXCEGRAN [Suspect]
     Route: 048
  4. BASEN [Concomitant]
     Route: 048
  5. AMLODIPINE [Concomitant]
     Indication: HYPERTENSION
     Route: 048
     Dates: start: 20080301, end: 20080511
  6. AMLODIPINE [Concomitant]
     Route: 048
     Dates: start: 20080610

REACTIONS (3)
  - DERMATITIS EXFOLIATIVE [None]
  - GASTROENTERITIS EOSINOPHILIC [None]
  - PANCYTOPENIA [None]
